FAERS Safety Report 4486822-X (Version None)
Quarter: 2004Q4

REPORT INFORMATION
  Report Type: 
  Country: None (occurrence: None)
  Receive Date: 20041027
  Receipt Date: 20041018
  Transmission Date: 20050328
  Serious: Yes (Hospitalization, Other)
  Sender: FDA-Public Use
  Company Number: ZA-MERCK-0410ZAF00021

PATIENT
  Age: 65 Year
  Sex: Male

DRUGS (5)
  1. VIOXX [Suspect]
     Indication: RHEUMATOID ARTHRITIS
     Route: 048
     Dates: start: 20000101, end: 20040901
  2. METHOTREXATE [Concomitant]
     Indication: RHEUMATOID ARTHRITIS
     Route: 048
  3. ACETAMINOPHEN AND CODEINE PHOSPHATE [Concomitant]
     Indication: RHEUMATOID ARTHRITIS
     Route: 048
  4. CHLOROQUINE [Concomitant]
     Indication: RHEUMATOID ARTHRITIS
     Route: 048
  5. FOLIC ACID [Concomitant]
     Indication: RHEUMATOID ARTHRITIS
     Route: 048

REACTIONS (1)
  - CONVULSION [None]
